FAERS Safety Report 15008855 (Version 1)
Quarter: 2018Q2

REPORT INFORMATION
  Report Type: Report from Study
  Country: None (occurrence: CH)
  Receive Date: 20180613
  Receipt Date: 20180613
  Transmission Date: 20180711
  Serious: Yes (Hospitalization)
  Sender: FDA-Public Use
  Company Number: CH-ABBVIE-18K-151-2387223-00

PATIENT
  Age: 76 Year
  Sex: Female

DRUGS (3)
  1. DUODOPA [Suspect]
     Active Substance: CARBIDOPA\LEVODOPA
     Dosage: MORNING DOSE: 6ML?CONTINUOUS DOSE: 2ML/H?EXTRA DOSE: 2ML?16H THERAPY
     Route: 050
     Dates: start: 20150504, end: 20171012
  2. DUODOPA [Suspect]
     Active Substance: CARBIDOPA\LEVODOPA
     Indication: PARKINSON^S DISEASE
     Route: 050
     Dates: start: 20150427, end: 20150504
  3. DUODOPA [Suspect]
     Active Substance: CARBIDOPA\LEVODOPA
     Dosage: MORNING DOSE: 6ML?CONTINUOUS DOSE: 2,1ML/H?EXTRA DOSE: 2ML?16H THERAPY
     Route: 050
     Dates: start: 20171012

REACTIONS (4)
  - Hyperkinesia [Unknown]
  - Fall [Unknown]
  - Fall [Unknown]
  - Dizziness [Unknown]

NARRATIVE: CASE EVENT DATE: 201806
